FAERS Safety Report 23623566 (Version 2)
Quarter: 2024Q3

REPORT INFORMATION
  Report Type: Spontaneous
  Country: US (occurrence: US)
  Receive Date: 20240312
  Receipt Date: 20240725
  Transmission Date: 20241016
  Serious: Yes (Death, Hospitalization, Other)
  Sender: PFIZER
  Company Number: US-PFIZER INC-202400061785

PATIENT
  Age: 78 Year
  Sex: Male
  Weight: 59.864 kg

DRUGS (1)
  1. VYNDAMAX [Suspect]
     Active Substance: TAFAMIDIS
     Indication: Cardiac amyloidosis
     Dosage: 61 MG, 1X/DAY (TAKING 1 CAPSULE A DAY)
     Dates: start: 202303, end: 202407

REACTIONS (6)
  - Cardiac failure congestive [Fatal]
  - Nephropathy [Fatal]
  - Condition aggravated [Fatal]
  - Dyspnoea [Recovered/Resolved]
  - Asthenia [Unknown]
  - Weight decreased [Unknown]

NARRATIVE: CASE EVENT DATE: 20230101
